FAERS Safety Report 9922413 (Version 3)
Quarter: 2014Q1

REPORT INFORMATION
  Report Type: Spontaneous
  Country: DE (occurrence: DE)
  Receive Date: 20140225
  Receipt Date: 20140228
  Transmission Date: 20141002
  Serious: Yes (Other)
  Sender: FDA-Public Use
  Company Number: DE-UCBSA-112643

PATIENT
  Sex: Female
  Weight: 64 kg

DRUGS (2)
  1. KEPPRA [Suspect]
     Indication: GRAND MAL CONVULSION
     Dates: start: 2007
  2. NO CONCOMITANT MEDICATION [Concomitant]

REACTIONS (1)
  - Pancreatic atrophy [Not Recovered/Not Resolved]
